FAERS Safety Report 11227834 (Version 2)
Quarter: 2016Q2

REPORT INFORMATION
  Report Type: Spontaneous
  Country: BR (occurrence: BR)
  Receive Date: 20150630
  Receipt Date: 20160506
  Transmission Date: 20160815
  Serious: Yes (Other)
  Sender: FDA-Public Use
  Company Number: BR-DSJP-DSU-2015-120097

PATIENT

DRUGS (11)
  1. OLMETEC HCT [Suspect]
     Active Substance: HYDROCHLOROTHIAZIDE\OLMESARTAN MEDOXOMIL
     Indication: HYPERTENSION
     Dosage: 40/12.5 MG, QD
     Route: 048
     Dates: start: 1996
  2. EFFEXOR [Suspect]
     Active Substance: VENLAFAXINE HYDROCHLORIDE
     Indication: DEPRESSION
     Dosage: 75 MG
  3. ADVIL [Concomitant]
     Active Substance: IBUPROFEN
     Indication: PAIN
     Dosage: 1 TABLET, QD
  4. EFFEXOR [Suspect]
     Active Substance: VENLAFAXINE HYDROCHLORIDE
     Indication: MENTAL DISORDER
     Dosage: 150 MG, QD
     Route: 048
     Dates: start: 20060624
  5. OLMETEC HCT 20/12.5 [Suspect]
     Active Substance: HYDROCHLOROTHIAZIDE\OLMESARTAN MEDOXOMIL
     Indication: HYPERTENSION
     Dosage: 20/12.5 MG, QD
     Route: 048
     Dates: start: 201507
  6. OLMETEC HCT 20/12.5 [Suspect]
     Active Substance: HYDROCHLOROTHIAZIDE\OLMESARTAN MEDOXOMIL
     Indication: CARDIAC DISORDER
  7. NEOSALDINA                         /00631701/ [Concomitant]
     Indication: MIGRAINE
     Dosage: 2 TABLETS, UNK
     Route: 048
     Dates: start: 1980
  8. OSTENAN [Concomitant]
     Indication: OSTEOPOROSIS
     Dosage: 1 DF, ONCE EVERY 1 MO
     Route: 048
     Dates: start: 2015
  9. EFFEXOR [Suspect]
     Active Substance: VENLAFAXINE HYDROCHLORIDE
     Dosage: 300 MG, QD
     Route: 048
  10. MIOFLEX A [Concomitant]
     Indication: PAIN
     Dosage: 2-3 TABLETS, QD
     Route: 048
     Dates: start: 2006
  11. ARCOXIA [Concomitant]
     Active Substance: ETORICOXIB
     Indication: ANTIINFLAMMATORY THERAPY
     Dosage: UNK
     Dates: start: 2006

REACTIONS (5)
  - Memory impairment [Unknown]
  - Osteoporosis [Unknown]
  - Off label use [Not Recovered/Not Resolved]
  - Chondropathy [Unknown]
  - Depression [Unknown]

NARRATIVE: CASE EVENT DATE: 1996
